FAERS Safety Report 7946877-4 (Version None)
Quarter: 2011Q4

REPORT INFORMATION
  Report Type: 
  Country: None (occurrence: None)
  Receive Date: 20111129
  Receipt Date: 20111122
  Transmission Date: 20120403
  Serious: Yes (Hospitalization)
  Sender: FDA-Public Use
  Company Number: PHHY2011IL96776

PATIENT
  Age: 13 Year
  Sex: Female
  Weight: 34.9 kg

DRUGS (3)
  1. PNEUMOVAX 23 [Concomitant]
     Dosage: UNK
     Dates: start: 20111027
  2. ILARIS [Suspect]
     Indication: MUCKLE-WELLS SYNDROME
     Dosage: 70 MG, EVERY 8 WEEKS
     Route: 058
     Dates: start: 20110704
  3. INFLUENZA VACCINE [Concomitant]
     Dosage: UNK
     Dates: start: 20111027

REACTIONS (17)
  - CHILLS [None]
  - SKIN OEDEMA [None]
  - CELLULITIS [None]
  - INJECTION SITE PAIN [None]
  - SKIN EXFOLIATION [None]
  - TENDERNESS [None]
  - APHTHOUS STOMATITIS [None]
  - PYREXIA [None]
  - NEUTROPHIL COUNT ABNORMAL [None]
  - ERYTHEMA [None]
  - LEUKOCYTOSIS [None]
  - GENITAL ULCERATION [None]
  - MYOSITIS [None]
  - FEELING HOT [None]
  - OEDEMA PERIPHERAL [None]
  - HYPOKINESIA [None]
  - VOMITING [None]
